FAERS Safety Report 22872188 (Version 6)
Quarter: 2023Q4

REPORT INFORMATION
  Report Type: Report from Study
  Country: GB (occurrence: GB)
  Receive Date: 20230828
  Receipt Date: 20231009
  Transmission Date: 20240109
  Serious: Yes (Hospitalization)
  Sender: FDA-Public Use
  Company Number: GB-ARGENX-2023-ARGX-GB001009

PATIENT

DRUGS (3)
  1. VYVGART [Suspect]
     Active Substance: EFGARTIGIMOD ALFA-FCAB
     Indication: Myasthenia gravis
     Dosage: UNK
  2. VYVGART [Suspect]
     Active Substance: EFGARTIGIMOD ALFA-FCAB
     Dosage: 400 MG (20MG/ML)
     Route: 058
  3. SEMAGLUTIDE [Concomitant]
     Active Substance: SEMAGLUTIDE
     Indication: Product used for unknown indication
     Dosage: UNK

REACTIONS (32)
  - Malaise [Unknown]
  - Body temperature increased [Unknown]
  - Cyst [Unknown]
  - Fall [Unknown]
  - Weight fluctuation [Unknown]
  - Pain in extremity [Unknown]
  - Therapeutic product effect decreased [Unknown]
  - Contusion [Unknown]
  - Eye discharge [Unknown]
  - Myasthenia gravis [Unknown]
  - Contusion [Recovering/Resolving]
  - Alopecia [Unknown]
  - Feeling abnormal [Unknown]
  - Tenderness [Unknown]
  - Contusion [Unknown]
  - Headache [Recovered/Resolved]
  - Headache [Unknown]
  - Dizziness [Unknown]
  - Vomiting [Unknown]
  - Arthralgia [Unknown]
  - Unevaluable event [Unknown]
  - Nausea [Unknown]
  - Limb injury [Recovering/Resolving]
  - Haematoma [Unknown]
  - Weight increased [Unknown]
  - Chest pain [Unknown]
  - Hyperaesthesia teeth [Unknown]
  - Fatigue [Unknown]
  - Nausea [Unknown]
  - Exposure via skin contact [Unknown]
  - Device leakage [Unknown]
  - Incorrect dosage administered [Unknown]

NARRATIVE: CASE EVENT DATE: 20230324
